FAERS Safety Report 16280028 (Version 1)
Quarter: 2019Q2

REPORT INFORMATION
  Report Type: Spontaneous
  Country: US (occurrence: US)
  Receive Date: 20190507
  Receipt Date: 20190507
  Transmission Date: 20190711
  Serious: No
  Sender: FDA-Public Use
  Company Number: US-TEVA-2019-US-1038328

PATIENT
  Sex: Female

DRUGS (2)
  1. AUSTEDO [Suspect]
     Active Substance: DEUTETRABENAZINE
     Dosage: 18 MILLIGRAM DAILY;
  2. AUSTEDO [Suspect]
     Active Substance: DEUTETRABENAZINE
     Dates: start: 201903

REACTIONS (2)
  - Eye disorder [Unknown]
  - Drooling [Unknown]
